FAERS Safety Report 4313679-X (Version None)
Quarter: 2004Q1

REPORT INFORMATION
  Report Type: 
  Country: None (occurrence: None)
  Receive Date: 20040308
  Receipt Date: 20031110
  Transmission Date: 20041129
  Serious: Yes (Hospitalization)
  Sender: FDA-Public Use
  Company Number: PHNU2003DE03990

PATIENT
  Age: 53 Year
  Sex: Female

DRUGS (6)
  1. VOLTAREN [Suspect]
     Indication: SCIATICA
  2. TETRAZEPAM [Suspect]
     Indication: SCIATICA
  3. TRAMADOL HCL [Concomitant]
     Indication: SCIATICA
     Dosage: 5 INFUSIONS
     Route: 042
     Dates: start: 20030501
  4. VITAMIN B-12 [Concomitant]
     Indication: SCIATICA
     Dosage: 5 INFUSIONS
     Route: 042
     Dates: start: 20030501
  5. DEXAMETASON [Concomitant]
     Indication: SCIATICA
     Dosage: 5 INFUSIONS
     Route: 042
     Dates: start: 20030501
  6. CONCOR [Concomitant]
     Indication: HYPERTENSION
     Route: 048

REACTIONS (7)
  - DRUG ERUPTION [None]
  - ERYTHEMA [None]
  - EXANTHEM [None]
  - LYMPHADENOPATHY [None]
  - PRURITUS [None]
  - RASH MACULO-PAPULAR [None]
  - TYPE IV HYPERSENSITIVITY REACTION [None]
